FAERS Safety Report 20820020 (Version 1)
Quarter: 2022Q2

REPORT INFORMATION
  Report Type: Spontaneous
  Country: DE (occurrence: DE)
  Receive Date: 20220512
  Receipt Date: 20220512
  Transmission Date: 20220720
  Serious: Yes (Other)
  Sender: FDA-Public Use
  Company Number: DE-NOVARTISPH-NVSC2022DE106979

PATIENT
  Sex: Male

DRUGS (2)
  1. COSENTYX [Suspect]
     Active Substance: SECUKINUMAB
     Indication: Spondylitis
     Dosage: UNK (EVERY 6 WEEKS)
     Route: 065
  2. COSENTYX [Suspect]
     Active Substance: SECUKINUMAB
     Dosage: UNK UNK, QMO
     Route: 065

REACTIONS (4)
  - Leukopenia [Recovering/Resolving]
  - Arthralgia [Recovering/Resolving]
  - Inappropriate schedule of product administration [Unknown]
  - Product use in unapproved indication [Unknown]
